FAERS Safety Report 5508583-5 (Version None)
Quarter: 2007Q4

REPORT INFORMATION
  Report Type: 
  Country: None (occurrence: None)
  Receive Date: 20071031
  Receipt Date: 20070720
  Transmission Date: 20080405
  Serious: No
  Sender: FDA-Public Use
  Company Number: 2007PV033172

PATIENT
  Age: 55 Year
  Sex: Female

DRUGS (5)
  1. SYMLIN [Suspect]
     Indication: TYPE 2 DIABETES MELLITUS
     Dosage: 30 MCG; QPM; SC
     Route: 058
     Dates: start: 20070713
  2. LEVIN INSULIN [Concomitant]
  3. GLUCOPHAGE [Concomitant]
  4. AVANDAMET [Concomitant]
  5. JANUVIA [Concomitant]

REACTIONS (3)
  - ABDOMINAL DISTENSION [None]
  - BLOOD GLUCOSE INCREASED [None]
  - DRUG INEFFECTIVE [None]
